FAERS Safety Report 6081541-0 (Version None)
Quarter: 2009Q1

REPORT INFORMATION
  Report Type: 
  Country: None (occurrence: None)
  Receive Date: 20090213
  Receipt Date: 20090202
  Transmission Date: 20090719
  Serious: Yes (Hospitalization)
  Sender: FDA-Public Use
  Company Number: KV200900165

PATIENT
  Age: 46 Year
  Sex: Female

DRUGS (10)
  1. METOPROLOL SUCCINATE [Suspect]
     Indication: DRUG USE FOR UNKNOWN INDICATION
     Dosage: 50 MG, QD, ORAL
     Route: 048
  2. ELMIRON [Concomitant]
  3. WARFARIN [Concomitant]
  4. CYMBALTA [Concomitant]
  5. WELLBUTRIN [Concomitant]
  6. OMEPRAZOLE [Concomitant]
  7. XANAX [Concomitant]
  8. VERAPAMIL [Concomitant]
  9. TOPAMAX [Concomitant]
  10. MIRCETTE(DEGOGESTREL, ETHINYLESTRADIOL) [Concomitant]

REACTIONS (2)
  - CEREBRAL THROMBOSIS [None]
  - HEADACHE [None]
